FAERS Safety Report 14957011 (Version 1)
Quarter: 2018Q2

REPORT INFORMATION
  Report Type: Spontaneous
  Country: CN (occurrence: CN)
  Receive Date: 20180531
  Receipt Date: 20180531
  Transmission Date: 20180711
  Serious: Yes (Life-Threatening, Hospitalization)
  Sender: FDA-Public Use
  Company Number: PHHY2018CN010874

PATIENT
  Age: 81 Year
  Sex: Male
  Weight: 70 kg

DRUGS (1)
  1. ENTRESTO [Suspect]
     Active Substance: SACUBITRIL\VALSARTAN
     Indication: HYPERTENSION
     Dosage: 75 MG, QD (50MG IN THE MORNING AND ANOTHER 25 MG IN THE AFTERNOON)
     Route: 048
     Dates: start: 20180403, end: 20180405

REACTIONS (3)
  - Hypotension [Recovering/Resolving]
  - Dizziness [Recovering/Resolving]
  - Cold sweat [Recovering/Resolving]

NARRATIVE: CASE EVENT DATE: 20180405
